FAERS Safety Report 9569485 (Version 1)
Quarter: 2013Q3

REPORT INFORMATION
  Report Type: Spontaneous
  Country: US (occurrence: US)
  Receive Date: 20130930
  Receipt Date: 20130930
  Transmission Date: 20140515
  Serious: No
  Sender: FDA-Public Use
  Company Number: US-AMGEN-USASP2013066513

PATIENT
  Age: 59 Year
  Sex: Male

DRUGS (2)
  1. ENBREL [Suspect]
     Indication: RHEUMATOID ARTHRITIS
     Dosage: 50 MG, QWK
     Route: 065
     Dates: start: 20130501, end: 201308
  2. METHOTREXATE [Concomitant]
     Dosage: 4 TABS/WEEKLY
     Route: 065

REACTIONS (8)
  - Rash [Recovered/Resolved]
  - Skin discolouration [Recovered/Resolved]
  - Rash erythematous [Recovered/Resolved]
  - Musculoskeletal stiffness [Recovered/Resolved]
  - Alopecia [Recovered/Resolved]
  - Joint swelling [Recovered/Resolved]
  - Local swelling [Recovered/Resolved]
  - Joint stiffness [Recovered/Resolved]
